FAERS Safety Report 13675740 (Version 1)
Quarter: 2017Q2

REPORT INFORMATION
  Report Type: Spontaneous
  Country: CN (occurrence: CN)
  Receive Date: 20170621
  Receipt Date: 20170621
  Transmission Date: 20170830
  Serious: Yes (Hospitalization, Other)
  Sender: FDA-Public Use
  Company Number: CN-009507513-1706CHN006659

PATIENT
  Age: 82 Year
  Sex: Male
  Weight: 65 kg

DRUGS (1)
  1. DIPROSPAN [Suspect]
     Active Substance: BETAMETHASONE DIPROPIONATE\BETAMETHASONE SODIUM PHOSPHATE
     Indication: INFECTION
     Dosage: 5 MG, QW
     Route: 014
     Dates: start: 20170303, end: 20170303

REACTIONS (3)
  - Chest discomfort [Recovered/Resolved]
  - Pruritus generalised [Recovered/Resolved]
  - Generalised oedema [Recovered/Resolved]

NARRATIVE: CASE EVENT DATE: 20170303
